FAERS Safety Report 4972077-6 (Version None)
Quarter: 2006Q2

REPORT INFORMATION
  Report Type: 
  Country: None (occurrence: None)
  Receive Date: 20060407
  Receipt Date: 20060320
  Transmission Date: 20061013
  Serious: Yes (Hospitalization)
  Sender: FDA-Public Use
  Company Number: 2006-140045-NL

PATIENT
  Age: 68 Year
  Sex: Female

DRUGS (16)
  1. MIRTAZAPINE [Suspect]
     Indication: DELUSIONAL DISORDER, UNSPECIFIED TYPE
     Dosage: ORAL
     Route: 048
     Dates: end: 20050519
  2. MIRTAZAPINE [Suspect]
     Indication: DELUSIONAL DISORDER, UNSPECIFIED TYPE
     Dosage: ORAL
     Route: 048
     Dates: start: 20050520, end: 20050525
  3. HALOPERIDOL [Suspect]
     Dosage: ORAL
     Route: 048
     Dates: start: 20050504, end: 20050510
  4. HALOPERIDOL [Suspect]
     Dosage: ORAL
     Route: 048
     Dates: start: 20050512, end: 20050606
  5. HALOPERIDOL [Suspect]
     Dosage: ORAL
     Route: 048
     Dates: start: 20050608
  6. HALOPERIDOL [Suspect]
     Dosage: ORAL
     Route: 048
     Dates: start: 20050511
  7. HALOPERIDOL [Suspect]
     Dosage: ORAL
     Route: 048
     Dates: start: 20050607
  8. LEVOMEPROMAZINE [Suspect]
     Dosage: SEE IMAGE
     Route: 048
     Dates: end: 20050509
  9. LEVOMEPROMAZINE [Suspect]
     Dosage: SEE IMAGE
     Route: 048
     Dates: start: 20050510, end: 20050512
  10. LEVOMEPROMAZINE [Suspect]
     Dosage: SEE IMAGE
     Route: 048
     Dates: start: 20050513, end: 20050520
  11. LEVOMEPROMAZINE [Suspect]
     Dosage: SEE IMAGE
     Route: 048
     Dates: start: 20050521, end: 20050606
  12. LEVOMEPROMAZINE [Suspect]
     Dosage: SEE IMAGE
     Route: 048
     Dates: start: 20050607, end: 20050614
  13. LEVOMEPROMAZINE [Suspect]
     Dosage: SEE IMAGE
     Route: 048
     Dates: start: 20050615
  14. AMISULPRIDE [Concomitant]
  15. BIPERIDEN HYDROCHLORIDE TAB [Concomitant]
  16. DIHYDROERGOTAMINE MESYLATE [Concomitant]

REACTIONS (11)
  - ASTHENIA [None]
  - EYELID OEDEMA [None]
  - HAEMANGIOMA [None]
  - HEPATIC CONGESTION [None]
  - HEPATIC ENZYME INCREASED [None]
  - HEPATOTOXICITY [None]
  - LEUKOPENIA [None]
  - OEDEMA PERIPHERAL [None]
  - RIGHT VENTRICULAR FAILURE [None]
  - THROMBOCYTOPENIA [None]
  - TRANSAMINASES INCREASED [None]
